FAERS Safety Report 7318009-7 (Version None)
Quarter: 2011Q1

REPORT INFORMATION
  Report Type: 
  Country: None (occurrence: None)
  Receive Date: 20110227
  Receipt Date: 20110216
  Transmission Date: 20110831
  Serious: Yes (Hospitalization)
  Sender: FDA-Public Use
  Company Number: GB-B.I. PHARMACEUTICALS,INC./RIDGEFIELD-2011-DE-01141GD

PATIENT
  Sex: Male

DRUGS (6)
  1. NEVIRAPINE [Suspect]
     Indication: HIV INFECTION
     Dates: start: 19970101
  2. DIDANOSINE [Suspect]
     Indication: HIV INFECTION
     Dates: start: 19970101, end: 20050101
  3. ZIDOVUDINE [Suspect]
     Indication: HIV INFECTION
     Dates: start: 19970101, end: 20050101
  4. TENOFOVIR [Suspect]
     Indication: HIV INFECTION
     Dates: start: 20050101, end: 20090101
  5. LAMIVUDINE [Suspect]
     Indication: HIV INFECTION
     Dates: start: 20050101, end: 20090101
  6. TRUVADA [Suspect]
     Indication: HIV INFECTION
     Dates: start: 20090101

REACTIONS (3)
  - NODULAR REGENERATIVE HYPERPLASIA [None]
  - HAEMATEMESIS [None]
  - OESOPHAGEAL VARICES HAEMORRHAGE [None]
